FAERS Safety Report 9058254 (Version 1)
Quarter: 2013Q1

REPORT INFORMATION
  Report Type: Spontaneous
  Country: US (occurrence: US)
  Receive Date: 20130211
  Receipt Date: 20130211
  Transmission Date: 20140127
  Serious: No
  Sender: FDA-Public Use
  Company Number: US-BIOGENIDEC-2013BI011345

PATIENT
  Sex: Female

DRUGS (2)
  1. AVONEX [Suspect]
     Indication: MULTIPLE SCLEROSIS
     Route: 030
     Dates: start: 20080804
  2. AVONEX [Suspect]
     Indication: MULTIPLE SCLEROSIS
     Route: 030
     Dates: start: 20121204

REACTIONS (9)
  - Injection site haemorrhage [Recovered/Resolved]
  - Paranoia [Recovered/Resolved]
  - Hypoaesthesia [Not Recovered/Not Resolved]
  - Solar lentigo [Unknown]
  - Balance disorder [Not Recovered/Not Resolved]
  - Influenza [Recovered/Resolved]
  - Feeling drunk [Not Recovered/Not Resolved]
  - Nausea [Recovered/Resolved]
  - Injection site pain [Recovered/Resolved]
